FAERS Safety Report 4696882-9 (Version None)
Quarter: 2005Q2

REPORT INFORMATION
  Report Type: 
  Country: None (occurrence: None)
  Receive Date: 20050127
  Receipt Date: 20050127
  Transmission Date: 20051028
  Serious: Yes (Other)
  Sender: FDA-Public Use
  Company Number: None

PATIENT
  Age: 53 Year
  Sex: Female
  Weight: 52.1637 kg

DRUGS (2)
  1. PERCODAN TAB [Suspect]
     Indication: ARTHRITIS
     Dosage: ONE - TWO Q 4 HOURS PRN (UP TO 8 DAILY)
  2. PERCODAN TAB [Suspect]
     Indication: PANCREATITIS CHRONIC
     Dosage: ONE - TWO Q 4 HOURS PRN (UP TO 8 DAILY)

REACTIONS (1)
  - DRUG EFFECT DECREASED [None]
